FAERS Safety Report 7505979-7 (Version None)
Quarter: 2011Q2

REPORT INFORMATION
  Report Type: 
  Country: None (occurrence: None)
  Receive Date: 20110526
  Receipt Date: 20110512
  Transmission Date: 20111010
  Serious: Yes (Other)
  Sender: FDA-Public Use
  Company Number: PHHY2011US41484

PATIENT

DRUGS (1)
  1. RECLAST [Suspect]
     Dosage: 5 MG,
     Route: 042

REACTIONS (1)
  - WRIST FRACTURE [None]
